FAERS Safety Report 7637803-6 (Version None)
Quarter: 2011Q3

REPORT INFORMATION
  Report Type: 
  Country: None (occurrence: None)
  Receive Date: 20110727
  Receipt Date: 20110722
  Transmission Date: 20111222
  Serious: Yes (Death)
  Sender: FDA-Public Use
  Company Number: PL-CELGENEUS-129-50794-11010990

PATIENT
  Sex: Male

DRUGS (2)
  1. VIDAZA [Suspect]
     Dosage: 115 MILLIGRAM
     Route: 058
     Dates: start: 20101201, end: 20101207
  2. PENTOXIFILINA [Concomitant]
     Dosage: 1200 MILLIGRAM
     Route: 048
     Dates: end: 20101214

REACTIONS (1)
  - PNEUMONIA [None]
